FAERS Safety Report 21518000 (Version 1)
Quarter: 2022Q4

REPORT INFORMATION
  Report Type: Report from Study
  Country: US (occurrence: US)
  Receive Date: 20221028
  Receipt Date: 20221028
  Transmission Date: 20230113
  Serious: No
  Sender: FDA-Public Use
  Company Number: US-ABBVIE-4137687

PATIENT
  Age: 74 Year
  Sex: Male
  Weight: 63.5 kg

DRUGS (2)
  1. HUMIRA [Suspect]
     Active Substance: ADALIMUMAB
     Indication: Colitis ulcerative
     Dosage: STRENGTH 40MG/0.4ML. CITRATE FREE
     Route: 058
     Dates: start: 20220225, end: 20220909
  2. Johnson and Johnson Covid19 Vaccine [Concomitant]
     Indication: COVID-19 immunisation
     Dosage: 1 IN ONCE. ?JOHNSON + JOHNSON
     Route: 030
     Dates: start: 20210316, end: 20210316

REACTIONS (4)
  - Inflammatory marker increased [Not Recovered/Not Resolved]
  - Therapeutic product effect decreased [Unknown]
  - Drug specific antibody present [Unknown]
  - Antibody test abnormal [Unknown]

NARRATIVE: CASE EVENT DATE: 20220501
